FAERS Safety Report 9310141 (Version 2)
Quarter: 2013Q4

REPORT INFORMATION
  Report Type: Spontaneous
  Country: FR (occurrence: FR)
  Receive Date: 20130527
  Receipt Date: 20131220
  Transmission Date: 20140711
  Serious: Yes (Other)
  Sender: FDA-Public Use
  Company Number: FR-009507513-1303FRA009510

PATIENT
  Age: 21 Year
  Sex: Female

DRUGS (2)
  1. STROMECTOL [Suspect]
     Indication: ACARODERMATITIS
     Dosage: UNK
     Route: 048
     Dates: start: 20130104, end: 20130104
  2. STROMECTOL [Suspect]
     Dosage: UNK
     Route: 048
     Dates: start: 20130120, end: 20130120

REACTIONS (3)
  - Hepatocellular injury [Unknown]
  - Cholestasis [Unknown]
  - Autoimmune hepatitis [Unknown]
